FAERS Safety Report 10797734 (Version 4)
Quarter: 2015Q2

REPORT INFORMATION
  Report Type: Spontaneous
  Country: US (occurrence: US)
  Receive Date: 20150216
  Receipt Date: 20150414
  Transmission Date: 20150821
  Serious: No
  Sender: FDA-Public Use
  Company Number: US-PFIZER INC-2015051860

PATIENT
  Age: 78 Year
  Sex: Female
  Weight: 54 kg

DRUGS (5)
  1. LYRICA [Suspect]
     Active Substance: PREGABALIN
     Dosage: 150 MG, 1X/DAY AT NIGHT
  2. LYRICA [Suspect]
     Active Substance: PREGABALIN
     Dosage: 150 MG AT NIGHT
     Dates: start: 2014
  3. LYRICA [Suspect]
     Active Substance: PREGABALIN
     Indication: NEUROPATHY PERIPHERAL
     Dosage: 25 MG, UNK
     Dates: start: 2012
  4. LYRICA [Suspect]
     Active Substance: PREGABALIN
     Indication: FIBROMYALGIA
     Dosage: 175 MG AT NIGHT AND 50 MG IN THE MORNING, 2X/DAY
     Dates: start: 2013
  5. LYRICA [Suspect]
     Active Substance: PREGABALIN
     Dosage: 150 MG, ALTERNATE DAY EVERY OTHER NIGHT

REACTIONS (6)
  - Joint swelling [Unknown]
  - Feeling abnormal [Unknown]
  - Drug withdrawal syndrome [Unknown]
  - Peripheral swelling [Unknown]
  - Depressed mood [Unknown]
  - Drug ineffective [Unknown]
